FAERS Safety Report 6094600-3 (Version None)
Quarter: 2009Q1

REPORT INFORMATION
  Report Type: 
  Country: None (occurrence: None)
  Receive Date: 20090226
  Receipt Date: 20090212
  Transmission Date: 20090719
  Serious: Yes (Hospitalization, Other)
  Sender: FDA-Public Use
  Company Number: PHHY2009JP05090

PATIENT
  Sex: Female

DRUGS (19)
  1. DIOVAN [Suspect]
     Dosage: 40 MG/DAY
     Route: 048
     Dates: start: 20081001, end: 20081016
  2. DIOVAN [Suspect]
     Dosage: UNK
  3. WARFARIN (NGX) [Suspect]
     Dosage: 1 MG/DAY
     Route: 048
  4. PARAMIDIN [Suspect]
     Dosage: 300 MG/DAY
     Route: 048
     Dates: start: 20081006, end: 20081106
  5. HERBESSOR R [Concomitant]
     Indication: HYPERTENSION
     Dosage: 100 MG/DAY
     Route: 048
  6. ITOROL [Concomitant]
     Indication: HYPERTENSION
     Dosage: 40 MGD/AY
     Route: 048
  7. LANIRAPID [Concomitant]
     Dosage: 0.1 MG/DAY
     Route: 048
  8. AMOBAN [Concomitant]
     Dosage: 7.5 MG/DAY
     Route: 048
  9. BENZALIN [Concomitant]
     Dosage: 5 MG/DAY
     Route: 048
  10. MUCOSOL [Concomitant]
     Dosage: 45 MG/DAY
     Route: 048
     Dates: start: 20081001, end: 20081016
  11. LASIX [Concomitant]
     Dosage: 20 MG/DAY
     Route: 048
  12. ALDACTONE [Concomitant]
     Dosage: 25 MG/DAY
     Route: 048
     Dates: start: 20081006
  13. AMIGRAND [Concomitant]
     Dosage: 500 ML
     Dates: start: 20081107, end: 20081112
  14. AMIGRAND [Concomitant]
     Dosage: 1000ML
  15. AMIGRAND [Concomitant]
     Dosage: 500ML
  16. KAYTWO N [Concomitant]
     Dosage: 10 MG/DAY
     Route: 042
     Dates: start: 20081107, end: 20081110
  17. KAYTWO N [Concomitant]
     Dosage: 20 MG/DAY
     Route: 042
  18. PAXIL [Concomitant]
     Dosage: 10 MG/DAY
     Route: 048
     Dates: start: 20081106, end: 20081116
  19. VITAMIN K [Concomitant]
     Dosage: 30 MG/DAY
     Route: 048
     Dates: start: 20081106, end: 20081112

REACTIONS (3)
  - BLOOD PRESSURE DECREASED [None]
  - BRONCHITIS CHRONIC [None]
  - HAEMORRHAGIC DISORDER [None]
